FAERS Safety Report 10387959 (Version 2)
Quarter: 2014Q3

REPORT INFORMATION
  Report Type: Spontaneous
  Country: BR (occurrence: BR)
  Receive Date: 20140815
  Receipt Date: 20140829
  Transmission Date: 20150326
  Serious: Yes (Hospitalization)
  Sender: FDA-Public Use
  Company Number: BR-009507513-1408BRA009000

PATIENT
  Sex: Male
  Weight: 71 kg

DRUGS (3)
  1. VICTRELIS [Suspect]
     Active Substance: BOCEPREVIR
     Indication: HEPATITIS C
     Dosage: UNK, UNKNOWN
     Route: 048
     Dates: start: 20130914, end: 20140813
  2. RIBAVIRIN. [Suspect]
     Active Substance: RIBAVIRIN
     Indication: HEPATITIS C
     Dosage: UNK, UNKNOWN
     Route: 048
  3. INTERFERON NOS [Concomitant]
     Active Substance: INTERFERON
     Indication: HEPATITIS C
     Dosage: UNK

REACTIONS (2)
  - Prostatomegaly [Not Recovered/Not Resolved]
  - Urinary tract infection [Not Recovered/Not Resolved]
